FAERS Safety Report 9297553 (Version 1)
Quarter: 2013Q2

REPORT INFORMATION
  Report Type: Spontaneous
  Country: US (occurrence: US)
  Receive Date: 20130520
  Receipt Date: 20130520
  Transmission Date: 20140414
  Serious: Yes (Hospitalization)
  Sender: FDA-Public Use
  Company Number: US-BAYER-2013-060609

PATIENT
  Age: 45 Year
  Sex: Female
  Weight: 73 kg

DRUGS (6)
  1. YASMIN [Suspect]
     Dosage: UNK
     Dates: end: 20050207
  2. PERCOCET [Concomitant]
     Dosage: 1-2
     Dates: start: 20050123
  3. TYLENOL [PARACETAMOL] [Concomitant]
     Dosage: UNK
     Dates: start: 20050126
  4. MULTIVITAMIN [Concomitant]
     Dosage: UNK
     Dates: start: 20050126
  5. VITAMIN C [Concomitant]
     Dosage: UNK
     Dates: start: 20050126
  6. VITAMIN E [Concomitant]
     Dosage: UNK
     Dates: start: 20050126

REACTIONS (1)
  - Pulmonary embolism [None]
